FAERS Safety Report 10074040 (Version 1)
Quarter: 2014Q2

REPORT INFORMATION
  Report Type: Spontaneous
  Country: US (occurrence: US)
  Receive Date: 20140411
  Receipt Date: 20140411
  Transmission Date: 20141212
  Serious: No
  Sender: FDA-Public Use
  Company Number: US-SA-2014SA000922

PATIENT
  Age: 70 Year
  Sex: Male

DRUGS (2)
  1. ALLEGRA D [Suspect]
     Indication: UPPER-AIRWAY COUGH SYNDROME
     Dosage: DOSAGE: 180 MG/240 MG
     Route: 048
     Dates: start: 20140103, end: 20140103
  2. ALLEGRA D [Suspect]
     Indication: COUGH
     Dosage: DOSAGE: 180 MG/240 MG
     Route: 048
     Dates: start: 20140103, end: 20140103

REACTIONS (1)
  - Drug ineffective [Unknown]
